FAERS Safety Report 4556539-1 (Version None)
Quarter: 2005Q1

REPORT INFORMATION
  Report Type: 
  Country: None (occurrence: None)
  Receive Date: 20050118
  Receipt Date: 20050107
  Transmission Date: 20050727
  Serious: Yes (Life-Threatening)
  Sender: FDA-Public Use
  Company Number: 2005-01-0307

PATIENT
  Age: 73 Year
  Sex: Female

DRUGS (1)
  1. PALACOS R WITH GENTAMICIN (CEMENT) CEMENT IMPLANT [Suspect]
     Indication: HIP ARTHROPLASTY
     Dosage: IMPLANT
     Dates: start: 20041122, end: 20041122

REACTIONS (2)
  - MEDICAL DEVICE COMPLICATION [None]
  - SUPRAVENTRICULAR TACHYCARDIA [None]
